FAERS Safety Report 12762419 (Version 1)
Quarter: 2016Q3

REPORT INFORMATION
  Report Type: Spontaneous
  Country: JP (occurrence: JP)
  Receive Date: 20160920
  Receipt Date: 20160920
  Transmission Date: 20161109
  Serious: Yes (Death, Other)
  Sender: FDA-Public Use
  Company Number: JP-STRIDES ARCOLAB LIMITED-2016SP013705

PATIENT

DRUGS (7)
  1. TACROLIMUS. [Suspect]
     Active Substance: TACROLIMUS
     Indication: PROPHYLAXIS AGAINST GRAFT VERSUS HOST DISEASE
     Dosage: 0.03 MG/KG, DAILY
  2. FLUDARABINE [Suspect]
     Active Substance: FLUDARABINE PHOSPHATE
     Indication: CORD BLOOD TRANSPLANT THERAPY
     Dosage: 30 MG/M2, UNK
  3. MELPHALAN [Suspect]
     Active Substance: MELPHALAN
     Indication: CORD BLOOD TRANSPLANT THERAPY
     Dosage: 40 MG/M2, UNK
  4. CORTICOSTEROIDS [Concomitant]
     Active Substance: CORTICOSTEROID NOS
     Indication: ORGANISING PNEUMONIA
     Dosage: UNK
  5. FLUDARABINE [Suspect]
     Active Substance: FLUDARABINE PHOSPHATE
     Dosage: 30 MG/M2, UNK
  6. CYCLOPHOSPHAMIDE. [Suspect]
     Active Substance: CYCLOPHOSPHAMIDE
     Indication: CORD BLOOD TRANSPLANT THERAPY
     Dosage: 2000 MG/M2, UNK
  7. MYCOPHENOLATE MOFETIL. [Suspect]
     Active Substance: MYCOPHENOLATE MOFETIL
     Indication: PROPHYLAXIS AGAINST GRAFT VERSUS HOST DISEASE
     Dosage: 1500 MG, DAILY

REACTIONS (7)
  - Pneumonia fungal [Unknown]
  - Histiocytosis haematophagic [Unknown]
  - Epilepsy [Unknown]
  - Systemic mycosis [Fatal]
  - Pulmonary mass [Unknown]
  - Brain abscess [Unknown]
  - Enterococcal sepsis [Unknown]
